FAERS Safety Report 7813197-8 (Version None)
Quarter: 2011Q4

REPORT INFORMATION
  Report Type: 
  Country: None (occurrence: None)
  Receive Date: 20111013
  Receipt Date: 20110930
  Transmission Date: 20120403
  Serious: Yes (Other)
  Sender: FDA-Public Use
  Company Number: US-BAYER-2011-081818

PATIENT
  Age: 23 Year
  Sex: Female
  Weight: 68.027 kg

DRUGS (12)
  1. LAMICTAL [Concomitant]
     Dosage: UNK UNK, QD
  2. DROSPIRENONE AND ETHINYL ESTRADIOL [Suspect]
     Indication: CONTRACEPTION
     Dosage: UNK
     Dates: start: 20090601, end: 20100201
  3. OXYCODONE HCL [Concomitant]
     Dosage: UNK
     Dates: start: 20091006
  4. FLUCONAZOLE [Concomitant]
     Dosage: 150 MG, UNK
     Dates: start: 20091110
  5. MULTI-VITAMIN [Concomitant]
     Dosage: UNK UNK, QD
  6. ALBUTEROL [Concomitant]
     Dosage: UNK
     Dates: start: 20091110
  7. TUSSIONEX [Concomitant]
     Dosage: UNK
     Dates: start: 20091110
  8. LEVAQUIN [Concomitant]
     Dosage: 500 MG, UNK
     Dates: start: 20091110
  9. LOSELLA [Concomitant]
  10. PERCOCET [Concomitant]
     Indication: PAIN
  11. CARAFATE [Concomitant]
     Dosage: UNK
     Dates: start: 20091006
  12. OMEPRAZOLE [Concomitant]
     Dosage: 20 MG, UNK

REACTIONS (6)
  - PAIN [None]
  - HIATUS HERNIA [None]
  - CHOLECYSTITIS CHRONIC [None]
  - INJURY [None]
  - GASTRITIS [None]
  - GALLBLADDER INJURY [None]
